FAERS Safety Report 7288089-6 (Version None)
Quarter: 2011Q1

REPORT INFORMATION
  Report Type: 
  Country: None (occurrence: None)
  Receive Date: 20110211
  Receipt Date: 20110208
  Transmission Date: 20110831
  Serious: Yes (Death)
  Sender: FDA-Public Use
  Company Number: US-B.I. PHARMACEUTICALS,INC./RIDGEFIELD-2010-BP-13780BP

PATIENT
  Sex: Male
  Weight: 175.54 kg

DRUGS (13)
  1. HYDROCHLOROTHIAZDE TAB [Concomitant]
     Dosage: 25 MG
  2. INDOCIN [Concomitant]
     Dosage: 150 MG
  3. ULTRAM [Concomitant]
     Route: 048
  4. MICARDIS [Suspect]
     Indication: HYPERTENSION
     Dosage: 80 MG
     Route: 048
  5. VERAPAMIL HCL [Concomitant]
  6. ASPIRIN [Concomitant]
     Dosage: 81 MG
  7. NOVOLIN 70/30 [Concomitant]
  8. LASIX [Concomitant]
     Dosage: 40 MG
     Route: 048
  9. METOPROLOL [Concomitant]
     Dosage: 100 MG
     Route: 048
  10. SYMBICORT [Concomitant]
     Route: 055
  11. RANITIDINE HCL [Concomitant]
     Dosage: 300 MG
     Route: 048
  12. POTASSIUM CHLORIDE CR [Concomitant]
     Route: 048
  13. LEVOTHROID [Concomitant]
     Dosage: 100 MCG
     Route: 048

REACTIONS (8)
  - ATRIAL FIBRILLATION [None]
  - RENAL FAILURE [None]
  - ENDOCARDITIS BACTERIAL [None]
  - DEATH [None]
  - CEREBROVASCULAR ACCIDENT [None]
  - SEPSIS [None]
  - ACUTE CORONARY SYNDROME [None]
  - RESPIRATORY FAILURE [None]
